FAERS Safety Report 7546282-9 (Version None)
Quarter: 2011Q2

REPORT INFORMATION
  Report Type: 
  Country: None (occurrence: None)
  Receive Date: 20110614
  Receipt Date: 20040322
  Transmission Date: 20111010
  Serious: Yes (Other)
  Sender: FDA-Public Use
  Company Number: PHFR2004GB01322

PATIENT
  Sex: Male

DRUGS (3)
  1. ZIMOVANE [Concomitant]
     Indication: INSOMNIA
     Dosage: 7.5MG/DAY
     Route: 048
     Dates: start: 20040224
  2. AMISULPRIDE [Concomitant]
     Dosage: 400 MG, UNK
     Route: 048
     Dates: start: 20040306, end: 20040309
  3. CLOZAPINE [Suspect]
     Dosage: 50MG/DAY
     Route: 048
     Dates: start: 20040303

REACTIONS (6)
  - BODY TEMPERATURE INCREASED [None]
  - NEUTROPHIL COUNT INCREASED [None]
  - HEART RATE INCREASED [None]
  - WHITE BLOOD CELL COUNT INCREASED [None]
  - URINARY TRACT INFECTION [None]
  - LOWER RESPIRATORY TRACT INFECTION [None]
